FAERS Safety Report 8302784 (Version 3)
Quarter: 2013Q4

REPORT INFORMATION
  Report Type: Spontaneous
  Country: JP (occurrence: JP)
  Receive Date: 20111220
  Receipt Date: 20131218
  Transmission Date: 20140711
  Serious: Yes (Hospitalization)
  Sender: FDA-Public Use
  Company Number: JP-GLAXOSMITHKLINE-B0763450A

PATIENT
  Age: 45 Year
  Sex: Female
  Weight: 64 kg

DRUGS (4)
  1. LAMICTAL [Suspect]
     Indication: BIPOLAR DISORDER
     Dosage: 25MG PER DAY
     Route: 048
     Dates: start: 20111029, end: 20111112
  2. LANDSEN [Suspect]
     Indication: BIPOLAR DISORDER
     Dosage: .5MG PER DAY
     Route: 048
     Dates: start: 20111029, end: 20111113
  3. LENDORMIN [Concomitant]
     Indication: BIPOLAR DISORDER
     Dosage: .25MG PER DAY
     Route: 048
     Dates: start: 20111029
  4. DEPAKENE-R [Concomitant]
     Indication: BIPOLAR DISORDER
     Route: 048
     Dates: start: 20101213

REACTIONS (17)
  - Drug eruption [Unknown]
  - Drug reaction with eosinophilia and systemic symptoms [Unknown]
  - Rash [Recovering/Resolving]
  - Pyrexia [Recovering/Resolving]
  - Nasopharyngitis [Unknown]
  - Erythema [Unknown]
  - Purpura [Unknown]
  - Lymph node palpable [Unknown]
  - Perivascular dermatitis [Unknown]
  - White blood cell count decreased [Recovered/Resolved]
  - C-reactive protein increased [Unknown]
  - Face oedema [Unknown]
  - Flushing [Unknown]
  - Localised oedema [Unknown]
  - Lymphadenopathy [Unknown]
  - Inflammation [Unknown]
  - Bone marrow failure [Unknown]
